FAERS Safety Report 6047602-7 (Version None)
Quarter: 2009Q1

REPORT INFORMATION
  Report Type: 
  Country: None (occurrence: None)
  Receive Date: 20090123
  Receipt Date: 20090115
  Transmission Date: 20090719
  Serious: Yes (Hospitalization)
  Sender: FDA-Public Use
  Company Number: SE-BAXTER-2009BH000803

PATIENT
  Age: 43 Year
  Sex: Female

DRUGS (2)
  1. GAMMAGARD LIQUID [Suspect]
     Indication: MULTIPLE SCLEROSIS
     Route: 042
     Dates: end: 20081105
  2. GAMMAGARD LIQUID [Suspect]
     Indication: OFF LABEL USE
     Route: 042
     Dates: end: 20081105

REACTIONS (2)
  - ALOPECIA [None]
  - ECZEMA [None]
